FAERS Safety Report 6928896-X (Version None)
Quarter: 2010Q3

REPORT INFORMATION
  Report Type: 
  Country: None (occurrence: None)
  Receive Date: 20100817
  Receipt Date: 20100811
  Transmission Date: 20110219
  Serious: Yes (Death, Other)
  Sender: FDA-Public Use
  Company Number: PHHY2010US52837

PATIENT
  Sex: Male

DRUGS (5)
  1. OCTREOTIDE ACETATE [Suspect]
     Dosage: 10 UG/KG/D
     Route: 058
  2. OCTREOTIDE ACETATE [Suspect]
     Dosage: 20 UG/KG/D
     Route: 058
  3. DIAZOXIDE [Concomitant]
     Indication: BLOOD INSULIN INCREASED
  4. NIFEDIPINE [Concomitant]
     Dosage: 1.5 UG/KG/MIN
  5. METOCLOPRAMIDE [Concomitant]

REACTIONS (3)
  - LAPAROTOMY [None]
  - NECROTISING COLITIS [None]
  - PNEUMATOSIS [None]
